FAERS Safety Report 4842740-6 (Version None)
Quarter: 2005Q4

REPORT INFORMATION
  Report Type: 
  Country: None (occurrence: None)
  Receive Date: 20051201
  Receipt Date: 20050622
  Transmission Date: 20060501
  Serious: Yes (Disabling)
  Sender: FDA-Public Use
  Company Number: ES-MERCK-0506ESP00036

PATIENT
  Age: 60 Year
  Sex: Male

DRUGS (2)
  1. COSOPT [Suspect]
     Indication: GLAUCOMA
     Route: 047
     Dates: start: 20050405, end: 20050401
  2. COSOPT [Suspect]
     Route: 047
     Dates: start: 20050101, end: 20050301

REACTIONS (3)
  - CATARACT [None]
  - ERECTILE DYSFUNCTION [None]
  - PENILE PAIN [None]
